FAERS Safety Report 5824365-9 (Version None)
Quarter: 2008Q3

REPORT INFORMATION
  Report Type: 
  Country: None (occurrence: None)
  Receive Date: 20080728
  Receipt Date: 20080206
  Transmission Date: 20090109
  Serious: No
  Sender: FDA-Public Use
  Company Number: US-BAYER-200810626BCC

PATIENT
  Age: 73 Year
  Sex: Female
  Weight: 78 kg

DRUGS (8)
  1. ALEVE (CAPLET) [Suspect]
     Indication: ARTHRALGIA
     Dosage: TOTAL DAILY DOSE: 220 MG  UNIT DOSE: 220 MG
     Route: 048
     Dates: start: 20080101
  2. HYDROCHLOROTHIAZIDE [Concomitant]
  3. NADOLOL [Concomitant]
  4. LORESTAT [Concomitant]
  5. LASIX [Concomitant]
  6. WELCORE [Concomitant]
  7. KIRKLAND VITAMINS [Concomitant]
  8. PRILOSEC [Concomitant]

REACTIONS (1)
  - HEADACHE [None]
